FAERS Safety Report 10072167 (Version 1)
Quarter: 2014Q2

REPORT INFORMATION
  Report Type: Spontaneous
  Country: PH (occurrence: PH)
  Receive Date: 20140411
  Receipt Date: 20140411
  Transmission Date: 20141212
  Serious: Yes (Other)
  Sender: FDA-Public Use
  Company Number: PH-009507513-1404PHL005142

PATIENT
  Age: 65 Year
  Sex: Male

DRUGS (1)
  1. JANUVIA [Suspect]
     Dosage: 1 TABLET/100 MG, ONCE A DAY
     Route: 048
     Dates: start: 201310

REACTIONS (3)
  - Haematochezia [Unknown]
  - Weight decreased [Unknown]
  - Faeces discoloured [Unknown]
